FAERS Safety Report 6768886-3 (Version None)
Quarter: 2010Q2

REPORT INFORMATION
  Report Type: 
  Country: None (occurrence: None)
  Receive Date: 20100611
  Receipt Date: 20100601
  Transmission Date: 20101027
  Serious: Yes (Hospitalization, Other)
  Sender: FDA-Public Use
  Company Number: 20108371

PATIENT
  Age: 63 Year
  Sex: Male

DRUGS (4)
  1. BACLOFEN [Suspect]
     Indication: MUSCLE SPASTICITY
     Dosage: MCG, DAILY, INTRATHECAL
     Route: 037
  2. NORVASC [Concomitant]
  3. RILUTEK [Concomitant]
  4. WARFARIN [Concomitant]

REACTIONS (1)
  - VENOUS THROMBOSIS [None]
